FAERS Safety Report 19256839 (Version 1)
Quarter: 2021Q2

REPORT INFORMATION
  Report Type: Spontaneous
  Country: US (occurrence: US)
  Receive Date: 20210513
  Receipt Date: 20210513
  Transmission Date: 20210717
  Serious: No
  Sender: FDA-Public Use
  Company Number: US-SA-2021SA157795

PATIENT
  Age: 15 Year
  Sex: Male

DRUGS (6)
  1. SINGULAIR [Concomitant]
     Active Substance: MONTELUKAST SODIUM
  2. ETHOSUXIMIDE. [Concomitant]
     Active Substance: ETHOSUXIMIDE
     Indication: SEIZURE
  3. DUPIXENT [Suspect]
     Active Substance: DUPILUMAB
     Dosage: 300 MG, QOW
     Dates: start: 2021
  4. CETIRIZINE [Concomitant]
     Active Substance: CETIRIZINE HYDROCHLORIDE
  5. DEPAKOTE [Concomitant]
     Active Substance: DIVALPROEX SODIUM
     Indication: SEIZURE
  6. DUPIXENT [Suspect]
     Active Substance: DUPILUMAB
     Indication: DERMATITIS ATOPIC
     Dosage: UNK UNK, 1X
     Dates: start: 20210405, end: 20210405

REACTIONS (2)
  - Ocular hyperaemia [Unknown]
  - Eye swelling [Unknown]

NARRATIVE: CASE EVENT DATE: 202104
